FAERS Safety Report 7993486-7 (Version None)
Quarter: 2011Q4

REPORT INFORMATION
  Report Type: 
  Country: None (occurrence: None)
  Receive Date: 20111219
  Receipt Date: 20111216
  Transmission Date: 20120403
  Serious: Yes (Hospitalization)
  Sender: FDA-Public Use
  Company Number: DE-ABBOTT-11P-062-0866858-00

PATIENT
  Sex: Female

DRUGS (2)
  1. HUMIRA [Suspect]
     Indication: PSORIASIS
     Route: 058
     Dates: start: 20070101
  2. HUMIRA [Suspect]
     Indication: PROSTATIC SPECIFIC ANTIGEN

REACTIONS (5)
  - PAIN OF SKIN [None]
  - SKIN FISSURES [None]
  - ECZEMA [None]
  - GAIT DISTURBANCE [None]
  - SKIN EXFOLIATION [None]
